FAERS Safety Report 16703303 (Version 1)
Quarter: 2019Q3

REPORT INFORMATION
  Report Type: Spontaneous
  Country: US (occurrence: US)
  Receive Date: 20190628
  Receipt Date: 20190628
  Transmission Date: 20191004
  Serious: Yes (Hospitalization)
  Sender: FDA-Public Use
  Company Number: None

PATIENT
  Age: 35 Year
  Sex: Male
  Weight: 84.82 kg

DRUGS (1)
  1. SUCCINYLCHOLINE [Suspect]
     Active Substance: SUCCINYLCHOLINE
     Indication: ORTHOPAEDIC PROCEDURE
     Route: 042
     Dates: start: 20190606

REACTIONS (2)
  - Muscle spasms [None]
  - Chromaturia [None]

NARRATIVE: CASE EVENT DATE: 20190620
